FAERS Safety Report 24239996 (Version 2)
Quarter: 2024Q3

REPORT INFORMATION
  Report Type: Spontaneous
  Country: FR (occurrence: FR)
  Receive Date: 20240822
  Receipt Date: 20240830
  Transmission Date: 20241017
  Serious: Yes (Hospitalization, Other)
  Sender: SANOFI AVENTIS
  Company Number: FR-MLMSERVICE-20180713-1271130-1

PATIENT
  Age: 63 Year
  Sex: Female

DRUGS (2)
  1. LETROZOLE [Suspect]
     Active Substance: LETROZOLE
     Indication: Hormone receptor positive HER2 negative breast cancer
     Dosage: 2.5 MG, QD
  2. DOCETAXEL [Suspect]
     Active Substance: DOCETAXEL\DOCETAXEL ANHYDROUS
     Indication: Hormone receptor positive HER2 negative breast cancer
     Dosage: 100 MG/M2, Q3W, EVERY 21 DAYS

REACTIONS (11)
  - Acute generalised exanthematous pustulosis [Recovered/Resolved]
  - Pustule [Recovered/Resolved]
  - Erythema [Recovered/Resolved]
  - Periorbital oedema [Recovered/Resolved]
  - Dermatitis exfoliative generalised [Recovered/Resolved]
  - Eyelid oedema [Recovered/Resolved]
  - Skin lesion [Recovered/Resolved]
  - Leukocytosis [Recovered/Resolved]
  - Skin exfoliation [Recovered/Resolved]
  - Subcorneal pustular dermatosis [Recovered/Resolved]
  - Staphylococcal impetigo [Recovered/Resolved]
